FAERS Safety Report 21996064 (Version 1)
Quarter: 2023Q1

REPORT INFORMATION
  Report Type: Report from Study
  Country: US (occurrence: US)
  Receive Date: 20230215
  Receipt Date: 20230215
  Transmission Date: 20230418
  Serious: Yes (Other)
  Sender: FDA-Public Use
  Company Number: US-UCBSA-2022004284

PATIENT
  Age: 61 Year
  Sex: Male

DRUGS (6)
  1. LACOSAMIDE [Suspect]
     Active Substance: LACOSAMIDE
     Indication: Seizure
     Dosage: 200 MILLIGRAM, 2X/DAY (BID)
     Dates: end: 20220127
  2. LACOSAMIDE [Suspect]
     Active Substance: LACOSAMIDE
     Dosage: 350MG A DAY
  3. LACOSAMIDE [Suspect]
     Active Substance: LACOSAMIDE
     Dosage: 200MG 3 TABLETS A DAY
  4. LACOSAMIDE [Suspect]
     Active Substance: LACOSAMIDE
     Dosage: 200 MILLIGRAM, 2X/DAY (BID) (1 TABLET)
  5. KEPPRA [Suspect]
     Active Substance: LEVETIRACETAM
     Indication: Product used for unknown indication
     Dosage: 1000MG-2 TABS AM AND 1 TAB PM
  6. KEPPRA [Suspect]
     Active Substance: LEVETIRACETAM
     Dosage: 100 MILLIGRAM, 2X/DAY (BID) (2 TABLETS)

REACTIONS (10)
  - Bipolar disorder [Not Recovered/Not Resolved]
  - Memory impairment [Not Recovered/Not Resolved]
  - Accident [Not Recovered/Not Resolved]
  - Swelling face [Not Recovered/Not Resolved]
  - Scab [Not Recovered/Not Resolved]
  - Product use issue [Unknown]
  - Product availability issue [Unknown]
  - Therapy interrupted [Unknown]
  - Intentional product misuse [Unknown]
  - Overdose [Unknown]

NARRATIVE: CASE EVENT DATE: 20220127
